FAERS Safety Report 4345075-3 (Version None)
Quarter: 2004Q2

REPORT INFORMATION
  Report Type: 
  Country: None (occurrence: None)
  Receive Date: 20040423
  Receipt Date: 20040415
  Transmission Date: 20050107
  Serious: Yes (Hospitalization)
  Sender: FDA-Public Use
  Company Number: US-JNJFOC-20040400993

PATIENT
  Sex: Female
  Weight: 45.36 kg

DRUGS (11)
  1. DURAGESIC [Suspect]
     Route: 062
  2. DURAGESIC [Suspect]
     Route: 062
  3. DURAGESIC [Suspect]
     Route: 062
  4. DURAGESIC [Suspect]
     Route: 062
  5. DURAGESIC [Suspect]
     Route: 062
  6. OXYGEN [Concomitant]
     Route: 055
  7. OXYGEN [Concomitant]
     Indication: EMPHYSEMA
     Dosage: 2 AND 1/2 LITERS PER DAY
     Route: 055
  8. XANAX [Concomitant]
     Indication: ANXIETY
     Dosage: 0.5 MG, 1 EVERY 6 TO EIGHT HOURS
     Route: 049
  9. PERCOCET [Concomitant]
     Route: 049
  10. PERCOCET [Concomitant]
     Indication: PAIN
     Dosage: 5 MG OXYCODONE/325 MG ACETAMINOPHEN, 1 EVERY 8 TO 12 HOURS (USUALLY TAKES 2 TO 3  PER DAY).
     Route: 049
  11. ACCUPRIL [Concomitant]
     Indication: BLOOD PRESSURE
     Route: 049

REACTIONS (20)
  - ANXIETY [None]
  - CHEST PAIN [None]
  - CHRONIC OBSTRUCTIVE AIRWAYS DISEASE EXACERBATED [None]
  - COLD SWEAT [None]
  - CONDITION AGGRAVATED [None]
  - DRUG WITHDRAWAL SYNDROME [None]
  - DYSPNOEA EXACERBATED [None]
  - EMPHYSEMA [None]
  - FATIGUE [None]
  - HYPERHIDROSIS [None]
  - HYPERSOMNIA [None]
  - INCREASED UPPER AIRWAY SECRETION [None]
  - MEDICATION ERROR [None]
  - MUSCLE CRAMP [None]
  - NAUSEA [None]
  - PANIC ATTACK [None]
  - PHARMACEUTICAL PRODUCT COMPLAINT [None]
  - RESPIRATORY TRACT CONGESTION [None]
  - TREATMENT NONCOMPLIANCE [None]
  - TREMOR [None]
